FAERS Safety Report 18656609 (Version 1)
Quarter: 2020Q4

REPORT INFORMATION
  Report Type: Spontaneous
  Country: GB (occurrence: GB)
  Receive Date: 20201224
  Receipt Date: 20201224
  Transmission Date: 20210114
  Serious: Yes (Hospitalization)
  Sender: FDA-Public Use
  Company Number: GB-AUROBINDO-AUR-APL-2020-062384

PATIENT
  Age: 78 Year
  Sex: Male

DRUGS (4)
  1. ATENOLOL. [Concomitant]
     Active Substance: ATENOLOL
     Indication: PRODUCT USED FOR UNKNOWN INDICATION
     Dosage: UNK
     Route: 065
  2. BENDROFLUMETHIAZIDE [Concomitant]
     Active Substance: BENDROFLUMETHIAZIDE
     Indication: PRODUCT USED FOR UNKNOWN INDICATION
     Dosage: UNK
     Route: 065
  3. FLUCLOXACILLIN [Suspect]
     Active Substance: FLUCLOXACILLIN
     Indication: INFECTION
     Dosage: 2000 MILLIGRAM, ONCE A DAY
     Route: 048
     Dates: start: 20201123, end: 20201129
  4. RAMIPRIL. [Suspect]
     Active Substance: RAMIPRIL
     Indication: CARDIAC DISORDER
     Dosage: 5 MILLIGRAM, ONCE A DAY
     Route: 048

REACTIONS (2)
  - Rash [Recovering/Resolving]
  - Lip swelling [Recovering/Resolving]

NARRATIVE: CASE EVENT DATE: 20201129
